FAERS Safety Report 4674381-8 (Version None)
Quarter: 2005Q2

REPORT INFORMATION
  Report Type: 
  Country: None (occurrence: None)
  Receive Date: 20050524
  Receipt Date: 20050509
  Transmission Date: 20051028
  Serious: No
  Sender: FDA-Public Use
  Company Number: 26670

PATIENT
  Age: 60 Year
  Sex: Male

DRUGS (1)
  1. ALDARA [Suspect]
     Indication: MALIGNANT MELANOMA
     Dosage: UNSPEC., EVERY THREE OR FOUR DAYS), TOPICAL
     Route: 061
     Dates: start: 20010801

REACTIONS (2)
  - LUNG DISORDER [None]
  - MANTLE CELL LYMPHOMA [None]
